FAERS Safety Report 8310072-X (Version None)
Quarter: 2012Q2

REPORT INFORMATION
  Report Type: 
  Country: None (occurrence: None)
  Receive Date: 20120423
  Receipt Date: 20120409
  Transmission Date: 20120825
  Serious: Yes (Other)
  Sender: FDA-Public Use
  Company Number: DSA_56215_2012

PATIENT
  Age: 8 Year
  Sex: Male

DRUGS (1)
  1. NITOMAN TAB [Suspect]
     Indication: CHOREA
     Dosage: 25 MG, DAILY ORAL
     Route: 048
     Dates: start: 20110621

REACTIONS (4)
  - PARKINSONISM [None]
  - AFFECT LABILITY [None]
  - ATAXIA [None]
  - AKATHISIA [None]
